FAERS Safety Report 18650117 (Version 7)
Quarter: 2023Q2

REPORT INFORMATION
  Report Type: Spontaneous
  Country: CZ (occurrence: CZ)
  Receive Date: 20201222
  Receipt Date: 20230411
  Transmission Date: 20230721
  Serious: Yes (Other)
  Sender: FDA-Public Use
  Company Number: None

PATIENT
  Age: 41 Year
  Sex: Female

DRUGS (3)
  1. TOPAMAX [Suspect]
     Active Substance: TOPIRAMATE
     Indication: Migraine prophylaxis
     Dosage: 25 MILLIGRAM, BID (2X25 MG IN A DAY)
     Route: 048
     Dates: start: 20160120, end: 20160120
  2. TOPAMAX [Suspect]
     Active Substance: TOPIRAMATE
     Dosage: UNK
     Route: 048
     Dates: start: 2016, end: 2016
  3. METOPROLOL [Suspect]
     Active Substance: METOPROLOL
     Indication: Migraine
     Route: 065
     Dates: start: 201601, end: 2016

REACTIONS (5)
  - Sedation [Recovered/Resolved]
  - Confusional state [Recovered/Resolved]
  - Anxiety [Unknown]
  - Presyncope [Recovered/Resolved]
  - Drug titration error [Unknown]

NARRATIVE: CASE EVENT DATE: 20160101
